FAERS Safety Report 6065445-5 (Version None)
Quarter: 2009Q1

REPORT INFORMATION
  Report Type: 
  Country: None (occurrence: None)
  Receive Date: 20090204
  Receipt Date: 20090123
  Transmission Date: 20090719
  Serious: Yes (Life-Threatening, Other)
  Sender: FDA-Public Use
  Company Number: US-PFIZER INC-2009161053

PATIENT
  Sex: Male
  Weight: 86.182 kg

DRUGS (2)
  1. CHANTIX [Suspect]
     Indication: SMOKING CESSATION THERAPY
     Dates: start: 20090116, end: 20090117
  2. NICOTROL [Suspect]
     Indication: SMOKING CESSATION THERAPY
     Dosage: UNK
     Dates: start: 20080801

REACTIONS (13)
  - ANAPHYLACTIC REACTION [None]
  - ANGER [None]
  - ANXIETY [None]
  - BLOOD PRESSURE INCREASED [None]
  - DIARRHOEA [None]
  - DYSPNOEA [None]
  - ECCHYMOSIS [None]
  - FEELING ABNORMAL [None]
  - MENTAL DISORDER [None]
  - NAUSEA [None]
  - PRURITUS [None]
  - RASH [None]
  - SOCIAL AVOIDANT BEHAVIOUR [None]
